FAERS Safety Report 9151892 (Version 1)
Quarter: 2013Q1

REPORT INFORMATION
  Report Type: Spontaneous
  Country: US (occurrence: US)
  Receive Date: 20130308
  Receipt Date: 20130308
  Transmission Date: 20140127
  Serious: No
  Sender: FDA-Public Use
  Company Number: US-GLAXOSMITHKLINE-A0999869A

PATIENT
  Sex: Male

DRUGS (2)
  1. NICOTINE GUM [Suspect]
     Indication: EX-TOBACCO USER
     Dates: start: 201210
  2. NICODERM CQ [Suspect]
     Route: 062
     Dates: start: 201210

REACTIONS (2)
  - Drug ineffective [Recovered/Resolved]
  - Nicotine dependence [Unknown]
